FAERS Safety Report 4491704-3 (Version None)
Quarter: 2004Q4

REPORT INFORMATION
  Report Type: 
  Country: None (occurrence: None)
  Receive Date: 20041103
  Receipt Date: 20040830
  Transmission Date: 20050328
  Serious: Yes (Hospitalization)
  Sender: FDA-Public Use
  Company Number: DE-ROCHE-378980

PATIENT
  Age: 61 Year
  Sex: Female
  Weight: 59 kg

DRUGS (1)
  1. ROCEPHIN [Suspect]
     Dosage: INFUSED IN TEN MINUTES.
     Route: 042
     Dates: start: 20040818, end: 20040831

REACTIONS (1)
  - FAECES DISCOLOURED [None]
